FAERS Safety Report 13898906 (Version 1)
Quarter: 2017Q3

REPORT INFORMATION
  Report Type: Report from Study
  Country: JP (occurrence: JP)
  Receive Date: 20170824
  Receipt Date: 20170824
  Transmission Date: 20171127
  Serious: Yes (Other)
  Sender: FDA-Public Use
  Company Number: JP-VIIV HEALTHCARE LIMITED-JP2017JPN128187

PATIENT
  Sex: Male

DRUGS (11)
  1. PREZISTANAIVE [Concomitant]
     Active Substance: DARUNAVIR
     Dosage: 800 MG, QD
     Dates: start: 20130808, end: 20150421
  2. LOPEMIN [Concomitant]
     Active Substance: LOPERAMIDE HYDROCHLORIDE
     Indication: DIARRHOEA
     Dosage: 1 MG, QD
     Dates: start: 20160602
  3. NORVIR [Suspect]
     Active Substance: RITONAVIR
     Indication: HIV INFECTION
     Dosage: 100 MG, 1D
     Route: 048
     Dates: start: 20110512, end: 20120808
  4. DOLUTEGRAVIR [Suspect]
     Active Substance: DOLUTEGRAVIR
     Indication: HIV INFECTION
     Dosage: 50 MG, 1D
     Route: 048
     Dates: start: 20150422
  5. NORVIR [Suspect]
     Active Substance: RITONAVIR
     Dosage: 100 MG, 1D
     Route: 048
     Dates: start: 20130808, end: 20150421
  6. POLITOSE [Concomitant]
     Indication: DIARRHOEA
     Dosage: 1 DF, QD
     Dates: start: 20160707
  7. CANDESARTAN. [Concomitant]
     Active Substance: CANDESARTAN
     Indication: HYPERTENSION
     Dosage: 4 MG, QD
  8. CEFAMEZIN [Concomitant]
     Active Substance: CEFAZOLIN
     Indication: CELLULITIS
     Dosage: 1 G, TID
     Dates: start: 20160707, end: 20160711
  9. KEFRAL [Concomitant]
     Active Substance: CEFACLOR
     Indication: CELLULITIS
     Dosage: 3 DF, TID
     Dates: start: 20160712, end: 20160718
  10. PREZISTANAIVE [Concomitant]
     Active Substance: DARUNAVIR
     Indication: HIV INFECTION
     Dosage: 800 MG, 1D
     Dates: start: 20111204, end: 20120808
  11. EPZICOM [Suspect]
     Active Substance: ABACAVIR SULFATE\LAMIVUDINE
     Indication: HIV INFECTION
     Dosage: 1 DF, 1D
     Route: 048
     Dates: start: 20100415

REACTIONS (2)
  - Beta 2 microglobulin urine increased [Not Recovered/Not Resolved]
  - Renal impairment [Not Recovered/Not Resolved]
